FAERS Safety Report 20215104 (Version 2)
Quarter: 2021Q4

REPORT INFORMATION
  Report Type: Spontaneous
  Country: US (occurrence: None)
  Receive Date: 20211222
  Receipt Date: 20211224
  Transmission Date: 20220303
  Serious: Yes (Death)
  Sender: FDA-Public Use
  Company Number: US-ROCHE-2983653

PATIENT
  Age: 83 Year
  Sex: Female

DRUGS (12)
  1. ESBRIET [Suspect]
     Active Substance: PIRFENIDONE
     Indication: Pulmonary fibrosis
     Route: 048
  2. AMLODIPINE [Concomitant]
     Active Substance: AMLODIPINE BESYLATE
  3. COLCHICINE [Concomitant]
     Active Substance: COLCHICINE
  4. FEBUXOSTAT [Concomitant]
     Active Substance: FEBUXOSTAT
  5. FLUTICASONE PROPIONATE [Concomitant]
     Active Substance: FLUTICASONE PROPIONATE
     Dosage: 50MCG
  6. FUROSEMIDE [Concomitant]
     Active Substance: FUROSEMIDE
  7. METOPROLOL [Concomitant]
     Active Substance: METOPROLOL
  8. NYSTATIN [Concomitant]
     Active Substance: NYSTATIN
  9. NYSTATIN [Concomitant]
     Active Substance: NYSTATIN
  10. OMEPRAZOLE [Concomitant]
     Active Substance: OMEPRAZOLE
  11. ROSUVASTATIN [Concomitant]
     Active Substance: ROSUVASTATIN
  12. VITAMIN D3 [Concomitant]
     Active Substance: CHOLECALCIFEROL
     Dosage: 50 MCG

REACTIONS (1)
  - Death [Fatal]

NARRATIVE: CASE EVENT DATE: 20211215
